FAERS Safety Report 5485744-5 (Version None)
Quarter: 2007Q4

REPORT INFORMATION
  Report Type: 
  Country: None (occurrence: None)
  Receive Date: 20071011
  Receipt Date: 20071011
  Transmission Date: 20080405
  Serious: Yes (Disabling)
  Sender: FDA-Public Use
  Company Number: None

PATIENT
  Sex: Male
  Weight: 95.2554 kg

DRUGS (1)
  1. TOPIRAMATE [Suspect]
     Indication: MIGRAINE
     Dosage: 25MG FOR ONE WEEK THE 50MG   2X  PO  (DURATION: ONE WEEK, TWO DAYS)
     Route: 048

REACTIONS (2)
  - EYE IRRITATION [None]
  - GLAUCOMA [None]
